FAERS Safety Report 6941871-4 (Version None)
Quarter: 2010Q3

REPORT INFORMATION
  Report Type: 
  Country: None (occurrence: None)
  Receive Date: 20100826
  Receipt Date: 20100820
  Transmission Date: 20110219
  Serious: Yes (Hospitalization)
  Sender: FDA-Public Use
  Company Number: US-CEPHALON-2010004488

PATIENT
  Sex: Male
  Weight: 100 kg

DRUGS (8)
  1. PROVIGIL [Suspect]
     Indication: NARCOLEPSY
     Route: 048
  2. PROVIGIL [Suspect]
     Route: 048
  3. NARDIL [Concomitant]
     Indication: DEPRESSION
     Dates: start: 19800101
  4. DIAZEPAM [Concomitant]
     Indication: ANXIETY
     Dates: start: 19690101
  5. ACTOS [Concomitant]
     Indication: DIABETES MELLITUS
     Dates: start: 20000101
  6. GLYBURIDE [Concomitant]
     Indication: DIABETES MELLITUS
     Dates: start: 20000101
  7. GLYCOPYRROLATE [Concomitant]
     Dates: start: 20091201
  8. LOVASTATIN [Concomitant]
     Indication: BLOOD CHOLESTEROL INCREASED

REACTIONS (7)
  - ABDOMINAL DISCOMFORT [None]
  - AMNESIA [None]
  - CONFUSIONAL STATE [None]
  - DEPRESSION [None]
  - HYPERTENSION [None]
  - RESPIRATORY TRACT CONGESTION [None]
  - URINARY TRACT INFECTION [None]
